FAERS Safety Report 5448035-4 (Version None)
Quarter: 2007Q3

REPORT INFORMATION
  Report Type: 
  Country: None (occurrence: None)
  Receive Date: 20070910
  Receipt Date: 20070904
  Transmission Date: 20080115
  Serious: Yes (Other)
  Sender: FDA-Public Use
  Company Number: HQWYE987104SEP07

PATIENT
  Age: 81 Year
  Sex: Male

DRUGS (7)
  1. AMIODARONE [Suspect]
     Indication: ATRIAL FIBRILLATION
     Route: 048
     Dates: start: 20060901
  2. AMIODARONE [Suspect]
     Indication: ATRIAL FLUTTER
  3. TORSEMIDE [Concomitant]
     Route: 048
  4. COVERSUM [Concomitant]
     Route: 048
  5. ASPIRIN [Suspect]
     Indication: ARTERIOSCLEROSIS
     Dosage: DOSE UNKNOWN
     Route: 065
  6. MARCUMAR [Suspect]
     Indication: LEFT VENTRICULAR DYSFUNCTION
     Dosage: DOSE UNKNOWN
     Route: 048
  7. MARCUMAR [Suspect]
     Indication: ANTICOAGULANT THERAPY

REACTIONS (3)
  - ANAEMIA [None]
  - GASTROINTESTINAL HAEMORRHAGE [None]
  - VOMITING [None]
